FAERS Safety Report 10518165 (Version 2)
Quarter: 2014Q4

REPORT INFORMATION
  Report Type: Spontaneous
  Country: US (occurrence: US)
  Receive Date: 20141015
  Receipt Date: 20141124
  Transmission Date: 20150528
  Serious: No
  Sender: FDA-Public Use
  Company Number: US-BIOGENIDEC-2014BI105832

PATIENT
  Age: 63 Year
  Sex: Female

DRUGS (1)
  1. TECFIDERA [Suspect]
     Active Substance: DIMETHYL FUMARATE
     Indication: MULTIPLE SCLEROSIS
     Route: 048
     Dates: start: 20140927

REACTIONS (14)
  - Cystitis [Unknown]
  - Flushing [Recovered/Resolved]
  - Eye disorder [Unknown]
  - Pain [Unknown]
  - Vomiting [Unknown]
  - Central nervous system lesion [Not Recovered/Not Resolved]
  - Chills [Not Recovered/Not Resolved]
  - Pyrexia [Unknown]
  - Memory impairment [Recovered/Resolved]
  - Adverse event [Not Recovered/Not Resolved]
  - Alopecia [Unknown]
  - Optic neuritis [Not Recovered/Not Resolved]
  - White blood cell count decreased [Unknown]
  - Gastric disorder [Unknown]

NARRATIVE: CASE EVENT DATE: 20140927
